FAERS Safety Report 19317982 (Version 1)
Quarter: 2021Q2

REPORT INFORMATION
  Report Type: Report from Study
  Country: US (occurrence: US)
  Receive Date: 20210527
  Receipt Date: 20210527
  Transmission Date: 20210717
  Serious: Yes (Hospitalization, Other)
  Sender: FDA-Public Use
  Company Number: US-BIOGEN-2019BI00791372

PATIENT
  Age: 56 Year
  Sex: Female
  Weight: 68.9 kg

DRUGS (2)
  1. TECFIDERA [Suspect]
     Active Substance: DIMETHYL FUMARATE
     Route: 065
     Dates: start: 2015
  2. TECFIDERA [Suspect]
     Active Substance: DIMETHYL FUMARATE
     Indication: MULTIPLE SCLEROSIS
     Route: 048
     Dates: start: 20141031

REACTIONS (8)
  - Upper limb fracture [Unknown]
  - Foot fracture [Unknown]
  - Gait inability [Unknown]
  - Electroencephalogram abnormal [Unknown]
  - Intervertebral disc protrusion [Not Recovered/Not Resolved]
  - Loss of control of legs [Unknown]
  - Hand fracture [Unknown]
  - Encephalopathy [Unknown]

NARRATIVE: CASE EVENT DATE: 20180415
